FAERS Safety Report 14300739 (Version 1)
Quarter: 2017Q4

REPORT INFORMATION
  Report Type: Spontaneous
  Country: US (occurrence: US)
  Receive Date: 20171218
  Receipt Date: 20171218
  Transmission Date: 20180321
  Serious: Yes (Hospitalization)
  Sender: FDA-Public Use
  Company Number: None

PATIENT
  Sex: Female

DRUGS (21)
  1. VENTOLIN [Concomitant]
     Active Substance: ALBUTEROL SULFATE
  2. CEFPODOXIME [Concomitant]
     Active Substance: CEFPODOXIME
  3. KCL [Concomitant]
     Active Substance: POTASSIUM CHLORIDE
  4. BREO ELLIPTA [Concomitant]
     Active Substance: FLUTICASONE FUROATE\VILANTEROL TRIFENATATE
  5. CLONAZEPAM. [Concomitant]
     Active Substance: CLONAZEPAM
  6. AZITHROMYCIN ANHYDROUS. [Concomitant]
     Active Substance: AZITHROMYCIN ANHYDROUS
  7. RALOXIFENE. [Concomitant]
     Active Substance: RALOXIFENE
  8. ELIQUIS [Concomitant]
     Active Substance: APIXABAN
  9. TORSEMIDE. [Concomitant]
     Active Substance: TORSEMIDE
  10. OXYCO/APAP [Concomitant]
  11. PREDNISONE. [Concomitant]
     Active Substance: PREDNISONE
  12. SPIRONOLACTONE. [Concomitant]
     Active Substance: SPIRONOLACTONE
  13. TRAMADOL. [Concomitant]
     Active Substance: TRAMADOL
  14. ESCITALOPRAM [Concomitant]
     Active Substance: ESCITALOPRAM OXALATE
  15. BISOPROLOL [Concomitant]
     Active Substance: BISOPROLOL
  16. PANTOPRAZOLE [Concomitant]
     Active Substance: PANTOPRAZOLE
  17. METHOCARBAMOL. [Concomitant]
     Active Substance: METHOCARBAMOL
  18. AMOX/K CLAV [Concomitant]
     Active Substance: AMOXICILLIN\CLAVULANATE POTASSIUM
  19. LAMOTRIGINE. [Concomitant]
     Active Substance: LAMOTRIGINE
  20. EXJADE [Suspect]
     Active Substance: DEFERASIROX
     Indication: HAEMOCHROMATOSIS
     Route: 048
     Dates: start: 20170405
  21. CARTIA XT [Concomitant]
     Active Substance: DILTIAZEM HYDROCHLORIDE

REACTIONS (2)
  - Pneumonia [None]
  - Drug dose omission [None]

NARRATIVE: CASE EVENT DATE: 2017
